FAERS Safety Report 24389984 (Version 4)
Quarter: 2025Q1

REPORT INFORMATION
  Report Type: Report from Study
  Country: JP (occurrence: JP)
  Receive Date: 20241003
  Receipt Date: 20250314
  Transmission Date: 20250409
  Serious: Yes (Death)
  Sender: SHIONOGI
  Company Number: JP-shionogi-202400000182

PATIENT
  Age: 83 Year
  Sex: Male
  Weight: 58 kg

DRUGS (10)
  1. CEFIDEROCOL [Suspect]
     Active Substance: CEFIDEROCOL
     Indication: Abdominal abscess
     Route: 041
     Dates: start: 20240910, end: 20240914
  2. CIPROFLOXACIN [Concomitant]
     Active Substance: CIPROFLOXACIN
     Indication: Abdominal abscess
     Route: 041
     Dates: start: 20240910, end: 20240914
  3. METRONIDAZOLE [Concomitant]
     Active Substance: METRONIDAZOLE
     Indication: Abdominal abscess
     Route: 041
     Dates: start: 20240913, end: 20240914
  4. ZYVOX [Concomitant]
     Active Substance: LINEZOLID
     Indication: Abdominal abscess
     Route: 041
     Dates: start: 20240913, end: 20240914
  5. DEXMEDETOMIDINE [Concomitant]
     Active Substance: DEXMEDETOMIDINE
     Indication: Prophylaxis
     Route: 065
     Dates: end: 20240914
  6. THROMBOMODULIN ALFA [Concomitant]
     Active Substance: THROMBOMODULIN ALFA
     Indication: Product used for unknown indication
     Route: 065
     Dates: end: 20240914
  7. FUROSEMIDE [Concomitant]
     Active Substance: FUROSEMIDE
     Indication: Product used for unknown indication
     Route: 065
     Dates: end: 20240914
  8. ULINASTATIN [Concomitant]
     Active Substance: ULINASTATIN
     Indication: Product used for unknown indication
     Route: 065
     Dates: start: 20240911, end: 20240914
  9. NOREPINEPHRINE BITARTRATE [Concomitant]
     Active Substance: NOREPINEPHRINE BITARTRATE
     Indication: Product used for unknown indication
     Route: 065
     Dates: start: 20240912, end: 20240914
  10. PITRESSIN [Concomitant]
     Active Substance: VASOPRESSIN
     Indication: Product used for unknown indication
     Route: 065
     Dates: start: 20240913, end: 20240914

REACTIONS (1)
  - Septic shock [Fatal]

NARRATIVE: CASE EVENT DATE: 20240912
